FAERS Safety Report 7463693-0 (Version None)
Quarter: 2011Q2

REPORT INFORMATION
  Report Type: 
  Country: None (occurrence: None)
  Receive Date: 20110506
  Receipt Date: 20110405
  Transmission Date: 20111010
  Serious: Yes (Hospitalization)
  Sender: FDA-Public Use
  Company Number: JP-ROCHE-746646

PATIENT
  Sex: Female
  Weight: 47.2 kg

DRUGS (26)
  1. PREDNISOLONE SODIUM SUCCINATE INJ [Concomitant]
     Route: 042
     Dates: start: 20091211, end: 20091211
  2. SELBEX [Concomitant]
     Dosage: FORM: PER ORAL AGENT
     Route: 048
  3. NORVASC [Concomitant]
     Dosage: FORM: PER ORAL AGENT
     Route: 048
     Dates: end: 20100827
  4. BONALON [Concomitant]
     Route: 048
     Dates: start: 20070112, end: 20100827
  5. TEPRENONE [Concomitant]
     Route: 048
     Dates: end: 20100827
  6. ACTEMRA [Suspect]
     Route: 041
     Dates: start: 20091211, end: 20091211
  7. ACTEMRA [Suspect]
     Route: 041
     Dates: start: 20100305, end: 20100305
  8. FOLIC ACID [Concomitant]
     Route: 048
     Dates: end: 20100827
  9. PREDONINE [Concomitant]
     Dosage: FORM: PER ORAL AGENT
     Route: 048
  10. PREDNISOLONE SODIUM SUCCINATE INJ [Concomitant]
     Route: 042
     Dates: start: 20100108, end: 20100108
  11. PREDNISOLONE SODIUM SUCCINATE INJ [Concomitant]
     Route: 042
     Dates: start: 20100305, end: 20100305
  12. LOXONIN [Concomitant]
     Dosage: FORM: PER ORAL AGENT
     Route: 048
  13. ACTONEL [Concomitant]
     Dosage: FORM: PER ORAL AGENT
     Route: 048
  14. BAKTAR [Concomitant]
     Route: 048
     Dates: start: 20101027
  15. ACTEMRA [Suspect]
     Route: 041
     Dates: start: 20100430, end: 20100730
  16. PREDNISOLONE SODIUM SUCCINATE INJ [Concomitant]
     Route: 042
     Dates: start: 20091113, end: 20091113
  17. ACTEMRA [Suspect]
     Route: 041
     Dates: start: 20100108, end: 20100108
  18. ACTEMRA [Suspect]
     Route: 041
     Dates: start: 20100402, end: 20100402
  19. METHOTREXATE [Suspect]
     Indication: RHEUMATOID ARTHRITIS
     Dosage: FORM: PER ORAL AGENT
     Route: 048
     Dates: end: 20100827
  20. PREDNISOLONE SODIUM SUCCINATE INJ [Concomitant]
     Route: 042
     Dates: start: 20100205, end: 20100205
  21. PREDNISOLONE SODIUM SUCCINATE INJ [Concomitant]
     Route: 042
     Dates: start: 20100402, end: 20100402
  22. KENTAN [Concomitant]
     Route: 048
     Dates: end: 20100827
  23. ACTEMRA [Suspect]
     Route: 041
     Dates: start: 20100205, end: 20100205
  24. SIMVASTATIN [Concomitant]
     Route: 048
     Dates: end: 20100827
  25. ACTEMRA [Suspect]
     Indication: RHEUMATOID ARTHRITIS
     Route: 041
     Dates: start: 20091113, end: 20091113
  26. SIMVASTATIN [Concomitant]
     Dosage: FORM: PER ORAL AGENT
     Route: 048

REACTIONS (2)
  - HODGKIN'S DISEASE [None]
  - DIABETES MELLITUS [None]
